FAERS Safety Report 8378426-3 (Version None)
Quarter: 2012Q2

REPORT INFORMATION
  Report Type: 
  Country: None (occurrence: None)
  Receive Date: 20120522
  Receipt Date: 20120329
  Transmission Date: 20120825
  Serious: No
  Sender: FDA-Public Use
  Company Number: US-ASTRAZENECA-2012SE21483

PATIENT
  Age: 64 Year
  Sex: Female

DRUGS (1)
  1. PRILOSEC [Suspect]
     Route: 048

REACTIONS (5)
  - DYSPNOEA [None]
  - SPEECH DISORDER [None]
  - DYSPHONIA [None]
  - DRUG INEFFECTIVE [None]
  - THROAT TIGHTNESS [None]
